FAERS Safety Report 16561257 (Version 3)
Quarter: 2019Q4

REPORT INFORMATION
  Report Type: Spontaneous
  Country: US (occurrence: US)
  Receive Date: 20190711
  Receipt Date: 20191022
  Transmission Date: 20200122
  Serious: Yes (Hospitalization, Other)
  Sender: FDA-Public Use
  Company Number: US-PFIZER INC-2019292082

PATIENT
  Age: 41 Year
  Sex: Male
  Weight: 124.74 kg

DRUGS (1)
  1. RAPAMUNE [Suspect]
     Active Substance: SIROLIMUS
     Indication: RENAL TRANSPLANT
     Dosage: UNK UNK, 2X/DAY
     Dates: start: 2003, end: 2015

REACTIONS (12)
  - Abdominal distension [Not Recovered/Not Resolved]
  - Scrotal swelling [Recovered/Resolved]
  - Lymphoedema [Not Recovered/Not Resolved]
  - Depression [Unknown]
  - Cellulitis [Not Recovered/Not Resolved]
  - Lymphadenopathy [Unknown]
  - Myalgia [Not Recovered/Not Resolved]
  - Peripheral swelling [Not Recovered/Not Resolved]
  - Influenza like illness [Not Recovered/Not Resolved]
  - Infection [Not Recovered/Not Resolved]
  - Weight increased [Not Recovered/Not Resolved]
  - Muscle tightness [Not Recovered/Not Resolved]

NARRATIVE: CASE EVENT DATE: 2003
